FAERS Safety Report 9857460 (Version 2)
Quarter: 2014Q1

REPORT INFORMATION
  Report Type: Spontaneous
  Country: IT (occurrence: IT)
  Receive Date: 20140131
  Receipt Date: 20140220
  Transmission Date: 20141002
  Serious: Yes (Other)
  Sender: FDA-Public Use
  Company Number: IT-ROCHE-1341389

PATIENT
  Age: 49 Year
  Sex: Female
  Weight: 64 kg

DRUGS (4)
  1. ZELBORAF [Suspect]
     Indication: METASTATIC MALIGNANT MELANOMA
     Route: 048
     Dates: start: 20131106
  2. SOLDESAM [Concomitant]
  3. LANSOPRAZOLO [Concomitant]
     Dosage: LANSOPRAZOLO SANDOZ
     Route: 048
  4. ZYLORIC [Concomitant]

REACTIONS (1)
  - Stomatitis [Not Recovered/Not Resolved]
